FAERS Safety Report 4622685-7 (Version None)
Quarter: 2005Q1

REPORT INFORMATION
  Report Type: 
  Country: None (occurrence: None)
  Receive Date: 20050329
  Receipt Date: 20050329
  Transmission Date: 20050727
  Serious: Yes (Hospitalization)
  Sender: FDA-Public Use
  Company Number: None

PATIENT
  Age: 70 Year
  Sex: Male
  Weight: 93.8946 kg

DRUGS (2)
  1. THEOPHYLLINE [Suspect]
     Indication: CHRONIC OBSTRUCTIVE PULMONARY DISEASE
     Dosage: 300 MG  DAILY  ORAL
     Route: 048
     Dates: start: 20020301, end: 20050328
  2. PSUEDOEPHEDRINE   60/TRIPROLIDINE  2.5MG [Suspect]
     Indication: BRONCHITIS
     Dosage: 1 TAB   BID   ORAL
     Route: 048
     Dates: start: 20050319, end: 20050322

REACTIONS (4)
  - CHRONIC OBSTRUCTIVE AIRWAYS DISEASE EXACERBATED [None]
  - ELECTROCARDIOGRAM ABNORMAL [None]
  - EXTRASYSTOLES [None]
  - HYPERGLYCAEMIA [None]
